FAERS Safety Report 15648635 (Version 2)
Quarter: 2018Q4

REPORT INFORMATION
  Report Type: Report from Study
  Country: None (occurrence: US)
  Receive Date: 20181122
  Receipt Date: 20181207
  Transmission Date: 20190205
  Serious: Yes (Hospitalization, Other)
  Sender: FDA-Public Use
  Company Number: US-ABBVIE-18K-163-2554123-00

PATIENT
  Age: 44 Year
  Sex: Female

DRUGS (1)
  1. HUMIRA [Suspect]
     Active Substance: ADALIMUMAB
     Indication: CROHN^S DISEASE
     Route: 058
     Dates: start: 20180615, end: 20181012

REACTIONS (7)
  - Gastrointestinal haemorrhage [Unknown]
  - Spinal deformity [Unknown]
  - Dehydration [Unknown]
  - Kidney infection [Recovered/Resolved]
  - Spinal cord compression [Unknown]
  - Clostridium difficile infection [Recovering/Resolving]
  - Neurological symptom [Unknown]

NARRATIVE: CASE EVENT DATE: 2018
